FAERS Safety Report 14006803 (Version 3)
Quarter: 2017Q4

REPORT INFORMATION
  Report Type: Spontaneous
  Country: US (occurrence: US)
  Receive Date: 20170925
  Receipt Date: 20171127
  Transmission Date: 20180321
  Serious: No
  Sender: FDA-Public Use
  Company Number: US-PFIZER INC-2017410280

PATIENT
  Age: 54 Year
  Sex: Female
  Weight: 61.69 kg

DRUGS (11)
  1. ACYCLOVIR /00587301/ [Concomitant]
     Active Substance: ACYCLOVIR
     Dosage: 800 MG, DAILY, (IF LESION APPEARS TAKE 2 TABLET DAILY UNTIL LESION RESOLVES)
  2. ONDANSETRON HCL [Concomitant]
     Active Substance: ONDANSETRON HYDROCHLORIDE
     Dosage: 8 MG, AS NEEDED, (TAKE 1 TABLET BY MOUTH EVERY TWELVE HOURS AS NEEDED)
     Route: 048
  3. VITAMIN D3 [Concomitant]
     Active Substance: CHOLECALCIFEROL
     Dosage: 1000 IU, UNK, (TAKE 1000 UNITS BY MOUTH EVERY TWO DAYS)
     Route: 048
  4. CYCLOBENZAPRINE. [Concomitant]
     Active Substance: CYCLOBENZAPRINE
     Dosage: 10 MG, AS NEEDED (AT BEDTIME. DO NOT USE LONGER THAN 2 WEEKS)
     Route: 048
  5. LORAZEPAM. [Concomitant]
     Active Substance: LORAZEPAM
     Indication: VOMITING
     Dosage: 1 MG, AS NEEDED (EVERY EIGHT HOURS AS NEEDED )
     Route: 048
  6. XALKORI [Suspect]
     Active Substance: CRIZOTINIB
     Indication: CERVIX CANCER METASTATIC
     Dosage: 250 MG, TWO TIMES DAILY, (1 TABLET BID)
     Route: 048
     Dates: start: 2017, end: 20171026
  7. ACYCLOVIR /00587301/ [Concomitant]
     Active Substance: ACYCLOVIR
     Dosage: 400 MG, DAILY, (1 TAB DAILY AT ONSET OF SYMPTOMS.)
  8. MELATONIN [Concomitant]
     Active Substance: MELATONIN
     Dosage: 20 MG, 1X/DAY (AT BEDTIME)
     Route: 048
  9. LORAZEPAM. [Concomitant]
     Active Substance: LORAZEPAM
     Indication: NAUSEA
  10. LIDOCAINE PRILOCAINE BIOGARAN [Concomitant]
     Dosage: UNK
  11. GREEN TEA EXTRACT [Concomitant]
     Dosage: 2 DF, 3X/DAY
     Route: 048

REACTIONS (10)
  - Nausea [Recovering/Resolving]
  - Muscle spasms [Recovering/Resolving]
  - Diarrhoea [Unknown]
  - Product use in unapproved indication [Unknown]
  - Dysphonia [Unknown]
  - Visual impairment [Unknown]
  - Dyspepsia [Unknown]
  - Pain [Not Recovered/Not Resolved]
  - Peripheral swelling [Unknown]
  - Neuralgia [Unknown]

NARRATIVE: CASE EVENT DATE: 2017
